FAERS Safety Report 7680099-X (Version None)
Quarter: 2011Q3

REPORT INFORMATION
  Report Type: 
  Country: None (occurrence: None)
  Receive Date: 20110812
  Receipt Date: 20110803
  Transmission Date: 20111222
  Serious: Yes (Other)
  Sender: FDA-Public Use
  Company Number: US-ROCHE-794627

PATIENT

DRUGS (1)
  1. ACCUTANE [Suspect]
     Route: 065
     Dates: start: 19940101, end: 19950101

REACTIONS (5)
  - DEPRESSION [None]
  - CROHN'S DISEASE [None]
  - PANCREATITIS [None]
  - IRRITABLE BOWEL SYNDROME [None]
  - RENAL INJURY [None]
